FAERS Safety Report 5189891-7 (Version None)
Quarter: 2006Q4

REPORT INFORMATION
  Report Type: 
  Country: None (occurrence: None)
  Receive Date: 20061218
  Receipt Date: 20061204
  Transmission Date: 20070319
  Serious: Yes (Hospitalization)
  Sender: FDA-Public Use
  Company Number: 2006AL003900

PATIENT
  Age: 66 Year
  Sex: Male

DRUGS (11)
  1. TRAMADOL HCL [Suspect]
     Dosage: QD; PO
     Route: 048
     Dates: start: 20030101
  2. DICLOFENAC SODIUM [Concomitant]
  3. ESOMEPRAZOLE MAGNESIUM [Concomitant]
  4. PROPRANOLOL [Concomitant]
  5. BROMAZEPAM [Concomitant]
  6. ACETAMINOPHEN [Concomitant]
  7. AMISULPRIDE [Concomitant]
  8. MIRTAZAPINE [Concomitant]
  9. VITAMIN B COMPLEX CAP [Concomitant]
  10. ALPRAZOLAM [Concomitant]
  11. VITAMIN B COMPLEX CAP [Concomitant]

REACTIONS (16)
  - COGNITIVE DISORDER [None]
  - CONFUSIONAL STATE [None]
  - COORDINATION ABNORMAL [None]
  - DELIRIUM [None]
  - DEMENTIA [None]
  - DISORIENTATION [None]
  - DISTURBANCE IN ATTENTION [None]
  - DYSARTHRIA [None]
  - FATIGUE [None]
  - MANIA [None]
  - MUSCLE RIGIDITY [None]
  - PARALYSIS [None]
  - PSYCHOTIC DISORDER [None]
  - SLEEP DISORDER [None]
  - SUBDURAL HAEMATOMA [None]
  - VITH NERVE DISORDER [None]
